FAERS Safety Report 5497980-2 (Version None)
Quarter: 2007Q4

REPORT INFORMATION
  Report Type: 
  Country: None (occurrence: None)
  Receive Date: 20071018
  Receipt Date: 20060828
  Transmission Date: 20080405
  Serious: Yes (Other)
  Sender: FDA-Public Use
  Company Number: 2006105649

PATIENT
  Sex: Female
  Weight: 125.1928 kg

DRUGS (5)
  1. NEURONTIN [Suspect]
     Indication: NEURALGIA
  2. SYNTHROID [Concomitant]
  3. DURAGESIC-100 [Concomitant]
  4. DARVOCET [Concomitant]
  5. ALL OTHER THERAPEUTIC PRODUCTS (ALL OTHER THERAPEUTIC PRODUCTS) [Concomitant]

REACTIONS (8)
  - CONFUSIONAL STATE [None]
  - DYSPNOEA [None]
  - HYPOAESTHESIA [None]
  - MUSCLE TIGHTNESS [None]
  - NECK PAIN [None]
  - PHARYNGEAL OEDEMA [None]
  - PHARYNGOLARYNGEAL PAIN [None]
  - SPEECH DISORDER [None]
